FAERS Safety Report 8576890-8 (Version None)
Quarter: 2012Q2

REPORT INFORMATION
  Report Type: 
  Country: None (occurrence: None)
  Receive Date: 20120423
  Receipt Date: 20100301
  Transmission Date: 20120825
  Serious: Yes (Life-Threatening, Hospitalization)
  Sender: FDA-Public Use
  Company Number: PHEH2009US11321

PATIENT
  Age: 79 Year
  Sex: Male
  Weight: 105.7 kg

DRUGS (4)
  1. EXJADE [Suspect]
     Indication: IRON OVERLOAD
     Dosage: 1000 MG, QD, ORAL : 2 DF, QD, ORAL : 1000 MG, QD, ORAL
     Route: 048
     Dates: start: 20090301, end: 20091024
  2. EXJADE [Suspect]
     Indication: MYELODYSPLASTIC SYNDROME
     Dosage: 1000 MG, QD, ORAL : 2 DF, QD, ORAL : 1000 MG, QD, ORAL
     Route: 048
     Dates: start: 20090301, end: 20091024
  3. EXJADE [Suspect]
     Indication: IRON OVERLOAD
     Dosage: 1000 MG, QD, ORAL : 2 DF, QD, ORAL : 1000 MG, QD, ORAL
     Route: 048
     Dates: start: 20091031
  4. EXJADE [Suspect]
     Indication: MYELODYSPLASTIC SYNDROME
     Dosage: 1000 MG, QD, ORAL : 2 DF, QD, ORAL : 1000 MG, QD, ORAL
     Route: 048
     Dates: start: 20091031

REACTIONS (8)
  - HAEMOGLOBIN DECREASED [None]
  - FAECES DISCOLOURED [None]
  - LEUKOPENIA [None]
  - NEUTROPENIA [None]
  - THROMBOCYTOPENIA [None]
  - STOMATITIS [None]
  - ANAEMIA [None]
  - BLOOD ALKALINE PHOSPHATASE INCREASED [None]
